FAERS Safety Report 6897718-8 (Version None)
Quarter: 2010Q3

REPORT INFORMATION
  Report Type: 
  Country: None (occurrence: None)
  Receive Date: 20100802
  Receipt Date: 20070724
  Transmission Date: 20110219
  Serious: No
  Sender: FDA-Public Use
  Company Number: US-PFIZER INC-2007045477

PATIENT
  Sex: Female

DRUGS (1)
  1. LYRICA [Suspect]
     Dates: start: 20051001

REACTIONS (6)
  - DRUG INEFFECTIVE [None]
  - HEADACHE [None]
  - ILL-DEFINED DISORDER [None]
  - NAUSEA [None]
  - NIGHT SWEATS [None]
  - TREMOR [None]
